FAERS Safety Report 4717100-9 (Version None)
Quarter: 2005Q3

REPORT INFORMATION
  Report Type: 
  Country: None (occurrence: None)
  Receive Date: 20050712
  Receipt Date: 20040803
  Transmission Date: 20060218
  Serious: Yes (Other)
  Sender: FDA-Public Use
  Company Number: PHEH2004US08474

PATIENT
  Age: 41 Year
  Sex: Male

DRUGS (1)
  1. GLEEVEC [Suspect]
     Indication: CHRONIC MYELOID LEUKAEMIA
     Dosage: 400 MG, QD, ORAL;  300 MG, QD, ORAL;  200 MG, QD, ORAL
     Route: 048

REACTIONS (1)
  - HEPATIC ENZYME INCREASED [None]
